FAERS Safety Report 9449283 (Version 1)
Quarter: 2013Q3

REPORT INFORMATION
  Report Type: Spontaneous
  Country: US (occurrence: US)
  Receive Date: 20130808
  Receipt Date: 20130808
  Transmission Date: 20140515
  Serious: Yes (Death)
  Sender: FDA-Public Use
  Company Number: US-009507513-1308USA002586

PATIENT
  Age: 64 Year
  Sex: Female
  Weight: 49.89 kg

DRUGS (4)
  1. TEMODAR [Suspect]
     Indication: PRODUCT USED FOR UNKNOWN INDICATION
     Dosage: UNK
     Route: 048
     Dates: start: 20130305
  2. MAGNESIUM (UNSPECIFIED) [Concomitant]
  3. VITAMINS (UNSPECIFIED) [Concomitant]
  4. SYNTHROID [Concomitant]

REACTIONS (1)
  - Death [Fatal]
